FAERS Safety Report 6847113-2 (Version None)
Quarter: 2010Q3

REPORT INFORMATION
  Report Type: 
  Country: None (occurrence: None)
  Receive Date: 20100716
  Receipt Date: 20100708
  Transmission Date: 20110219
  Serious: No
  Sender: FDA-Public Use
  Company Number: US-BIOGENIDEC-2010BI023539

PATIENT
  Age: 49 Year
  Sex: Female

DRUGS (3)
  1. TYSABRI [Suspect]
     Indication: MULTIPLE SCLEROSIS
     Route: 042
     Dates: start: 20100519
  2. AVONEX [Concomitant]
     Indication: MULTIPLE SCLEROSIS
     Route: 030
     Dates: start: 20080502
  3. OXYBUTYNIN CHLORIDE [Concomitant]
     Indication: BLADDER DISORDER

REACTIONS (4)
  - DEMENTIA [None]
  - DRUG EFFECT DECREASED [None]
  - INCONTINENCE [None]
  - MUSCLE SPASMS [None]
